FAERS Safety Report 8352431-5 (Version None)
Quarter: 2012Q2

REPORT INFORMATION
  Report Type: 
  Country: None (occurrence: None)
  Receive Date: 20120511
  Receipt Date: 20120504
  Transmission Date: 20120825
  Serious: Yes (Death, Hospitalization)
  Sender: FDA-Public Use
  Company Number: PHHY2012PH026986

PATIENT
  Sex: Male

DRUGS (2)
  1. GLEEVEC [Suspect]
     Indication: CHRONIC MYELOID LEUKAEMIA
     Dosage: 400 MG, DAILY
     Dates: start: 20041201
  2. GLEEVEC [Suspect]
     Dosage: 300 MG, DAILY

REACTIONS (10)
  - NEOPLASM MALIGNANT [None]
  - BLOOD CREATININE INCREASED [None]
  - PNEUMONIA [None]
  - HYPERTHYROIDISM [None]
  - PLEURAL EFFUSION [None]
  - AORTIC ANEURYSM [None]
  - CHRONIC MYELOID LEUKAEMIA [None]
  - SEPTIC SHOCK [None]
  - HEPATIC MASS [None]
  - VASCULITIS [None]
